FAERS Safety Report 7047826-6 (Version None)
Quarter: 2010Q4

REPORT INFORMATION
  Report Type: 
  Country: None (occurrence: None)
  Receive Date: 20101015
  Receipt Date: 20101008
  Transmission Date: 20110411
  Serious: No
  Sender: FDA-Public Use
  Company Number: US-PFIZER INC-2010123877

PATIENT
  Sex: Female
  Weight: 106.58 kg

DRUGS (2)
  1. CHANTIX [Suspect]
     Indication: SMOKING CESSATION THERAPY
     Dosage: 1 MG, 2X/DAY
     Dates: start: 20100401
  2. VALTREX [Concomitant]
     Dosage: UNK

REACTIONS (1)
  - TONGUE DISORDER [None]
